FAERS Safety Report 8066189-0 (Version None)
Quarter: 2012Q1

REPORT INFORMATION
  Report Type: 
  Country: None (occurrence: None)
  Receive Date: 20120117
  Receipt Date: 20120104
  Transmission Date: 20120608
  Serious: Yes (Other)
  Sender: FDA-Public Use
  Company Number: 2012-ES-0003

PATIENT

DRUGS (2)
  1. FENTANYL CITRATE [Suspect]
     Indication: OFF LABEL USE
  2. FENTANYL CITRATE [Suspect]
     Indication: PRODUCT USED FOR UNKNOWN INDICATION

REACTIONS (6)
  - DRUG DEPENDENCE [None]
  - CHILLS [None]
  - DRUG ABUSE [None]
  - RHINORRHOEA [None]
  - CRYING [None]
  - INCORRECT ROUTE OF DRUG ADMINISTRATION [None]
